FAERS Safety Report 5098770-5 (Version None)
Quarter: 2006Q3

REPORT INFORMATION
  Report Type: 
  Country: None (occurrence: None)
  Receive Date: 20060907
  Receipt Date: 20060828
  Transmission Date: 20061208
  Serious: Yes (Other)
  Sender: FDA-Public Use
  Company Number: IL-GLAXOSMITHKLINE-B0437128A

PATIENT
  Sex: Male

DRUGS (1)
  1. PAROXETINE HYDROCHLORIDE [Suspect]
     Dosage: 20MG PER DAY
     Route: 065
     Dates: start: 20030123

REACTIONS (7)
  - DEPRESSION [None]
  - OVERDOSE [None]
  - PERSECUTORY DELUSION [None]
  - PSYCHOTIC DISORDER [None]
  - SCHIZOPHRENIA, PARANOID TYPE [None]
  - SUICIDE ATTEMPT [None]
  - VOMITING [None]
